FAERS Safety Report 8401722-8 (Version None)
Quarter: 2012Q2

REPORT INFORMATION
  Report Type: 
  Country: None (occurrence: None)
  Receive Date: 20120601
  Receipt Date: 20120524
  Transmission Date: 20120825
  Serious: Yes (Hospitalization)
  Sender: FDA-Public Use
  Company Number: US-BAYER-2012-021970

PATIENT
  Age: 21 Year
  Sex: Female
  Weight: 86 kg

DRUGS (20)
  1. YAZ [Suspect]
     Indication: PROPHYLAXIS
     Dosage: UNK
     Dates: start: 20080101
  2. OXYCONTIN [Concomitant]
     Dosage: 40 MG, UNK
     Dates: start: 20091217
  3. QVAR 40 [Concomitant]
     Indication: ASTHMA
  4. LO/OVRAL [Concomitant]
     Dosage: UNK
     Dates: start: 20101227
  5. ANTI-ASTHMATICS [Concomitant]
     Dosage: UNK
     Dates: start: 20000101
  6. SINGULAIR [Concomitant]
     Indication: ASTHMA
  7. CARAFATE [Concomitant]
     Indication: IRRITABLE BOWEL SYNDROME
  8. CRYSELLE [Concomitant]
     Dosage: UNK
     Dates: start: 20101213
  9. YASMIN [Suspect]
     Indication: PROPHYLAXIS
     Dosage: UNK
     Dates: start: 20080101
  10. AZITHROMYCIN [Concomitant]
     Dosage: 250 MG, UNK
     Dates: start: 20091201
  11. OXYCODONE HCL AND ACETAMINOPHEN [Concomitant]
     Dosage: 10-325 MG
     Dates: start: 20091217
  12. TRAMADOL HCL [Concomitant]
     Dosage: 50 MG, UNK
     Dates: start: 20091217
  13. MORPHINE [Concomitant]
     Indication: PAIN
  14. ZOFRAN [Concomitant]
     Indication: VOMITING
  15. PHENERGAN [Concomitant]
     Indication: VOMITING
  16. ALBUTEROL [Concomitant]
     Indication: ASTHMA
     Dosage: UNK
     Dates: start: 20000101
  17. NUVARING [Concomitant]
     Dosage: UNK
     Dates: start: 20090706
  18. SPIRIVA [Concomitant]
     Indication: ASTHMA
  19. ZYRTEC [Concomitant]
     Indication: RHINITIS ALLERGIC
  20. RHINOCORT [Concomitant]
     Indication: RHINITIS ALLERGIC

REACTIONS (3)
  - PAIN [None]
  - CHOLECYSTITIS CHRONIC [None]
  - GALLBLADDER DISORDER [None]
